FAERS Safety Report 13444151 (Version 1)
Quarter: 2017Q2

REPORT INFORMATION
  Report Type: Spontaneous
  Country: FR (occurrence: FR)
  Receive Date: 20170414
  Receipt Date: 20170414
  Transmission Date: 20170830
  Serious: Yes (Death, Hospitalization, Other)
  Sender: FDA-Public Use
  Company Number: FR-ASTRAZENECA-2017SE38216

PATIENT
  Age: 33027 Day
  Sex: Male

DRUGS (13)
  1. DISCOTRINE [Concomitant]
     Active Substance: NITROGLYCERIN
  2. COVERSYL [Concomitant]
     Active Substance: PERINDOPRIL
  3. TEMESTA [Concomitant]
     Active Substance: LORAZEPAM
  4. RISPERDAL [Suspect]
     Active Substance: RISPERIDONE
     Route: 048
     Dates: end: 20170301
  5. LASILIX [Suspect]
     Active Substance: FUROSEMIDE
     Route: 048
     Dates: start: 20170303
  6. CARDENSIEL [Concomitant]
     Active Substance: BISOPROLOL FUMARATE
  7. KALEORID [Suspect]
     Active Substance: POTASSIUM CHLORIDE
     Route: 048
     Dates: end: 20170301
  8. HEMIGOXINE [Suspect]
     Active Substance: DIGOXIN
     Route: 048
     Dates: end: 20170301
  9. PREVISCAN [Concomitant]
     Active Substance: FLUINDIONE
  10. PAROXETINE. [Suspect]
     Active Substance: PAROXETINE
     Route: 065
  11. CORTANCYL [Concomitant]
     Active Substance: PREDNISONE
  12. MOPRAL [Suspect]
     Active Substance: OMEPRAZOLE SODIUM
     Route: 048
     Dates: end: 20170301
  13. LASILIX [Suspect]
     Active Substance: FUROSEMIDE
     Route: 048
     Dates: end: 20170301

REACTIONS (10)
  - Long QT syndrome [Unknown]
  - Cardio-respiratory arrest [Fatal]
  - Seizure [Fatal]
  - Confusional state [Not Recovered/Not Resolved]
  - Disorientation [Unknown]
  - Hypochloraemia [Unknown]
  - Hyponatraemia [Recovered/Resolved]
  - Cardiac failure [Unknown]
  - Delusional perception [Unknown]
  - Hallucination [Not Recovered/Not Resolved]

NARRATIVE: CASE EVENT DATE: 20170224
